FAERS Safety Report 5416655-9 (Version None)
Quarter: 2007Q3

REPORT INFORMATION
  Report Type: 
  Country: None (occurrence: None)
  Receive Date: 20070814
  Receipt Date: 20070803
  Transmission Date: 20080115
  Serious: Yes (Hospitalization)
  Sender: FDA-Public Use
  Company Number: CHNY2007FR02807

PATIENT
  Age: 15 Year
  Sex: Male

DRUGS (1)
  1. HYOSCINE HBR HYT [Suspect]
     Indication: SALIVARY HYPERSECRETION
     Dosage: 1 DF, Q72H, TRANSDERMAL
     Route: 062
     Dates: end: 20070726

REACTIONS (2)
  - BLADDER DISTENSION [None]
  - URINARY RETENTION [None]
